FAERS Safety Report 8379908-0 (Version None)
Quarter: 2012Q1

REPORT INFORMATION
  Report Type: 
  Country: None (occurrence: None)
  Receive Date: 20120323
  Receipt Date: 20110414
  Transmission Date: 20120608
  Serious: No
  Sender: FDA-Public Use
  Company Number: 163-21880-11041972 (0)

PATIENT
  Age: 54 Year
  Sex: Female

DRUGS (6)
  1. REVLIMID [Suspect]
     Indication: AMYLOIDOSIS
     Dosage: 25 MG, DAILY X 21 DAYS, PO
     Route: 048
     Dates: start: 20110321, end: 20110409
  2. ALENDRONATE SODIUM [Concomitant]
  3. ASPIRIN [Concomitant]
  4. ACYCLOVIR [Concomitant]
  5. LEVOTHYROXINE SODIUM [Concomitant]
  6. PROCHLORPERAZINE (PRTOCHLORPERAZINE) [Concomitant]

REACTIONS (5)
  - DYSGEUSIA [None]
  - LIP SWELLING [None]
  - DYSPHONIA [None]
  - MUSCLE SPASMS [None]
  - FATIGUE [None]
